FAERS Safety Report 9555463 (Version 1)
Quarter: 2013Q3

REPORT INFORMATION
  Report Type: Report from Study
  Country: DE (occurrence: DE)
  Receive Date: 20130926
  Receipt Date: 20130926
  Transmission Date: 20140515
  Serious: Yes (Hospitalization)
  Sender: FDA-Public Use
  Company Number: PHHY2013DE104119

PATIENT
  Age: 60 Year
  Sex: Male
  Weight: 81 kg

DRUGS (14)
  1. MYCOPHENOLATE MOFETIL [Suspect]
     Indication: RENAL TRANSPLANT
     Dosage: 1000 MG, BID
     Route: 048
     Dates: start: 20110208
  2. MYCOPHENOLATE MOFETIL [Suspect]
     Dosage: 750 MG, BID
     Dates: start: 20110214
  3. MYCOPHENOLATE MOFETIL [Suspect]
     Dosage: 1000 MG, BID
     Route: 048
     Dates: start: 20110228
  4. MYCOPHENOLATE MOFETIL [Suspect]
     Dosage: 1000 MG, BID
     Route: 048
     Dates: start: 20110728
  5. BASILIXIMAB [Suspect]
     Indication: RENAL TRANSPLANT
     Dosage: 20 MG, QD
     Route: 042
     Dates: start: 20110208
  6. TACROLIMUS [Suspect]
     Dosage: 3.5 MG, QD
     Dates: start: 20110208
  7. TACROLIMUS [Suspect]
     Dosage: 8 MG, QD
     Dates: start: 20110214
  8. TACROLIMUS [Suspect]
     Dosage: 3.5 MG, UNK
     Dates: start: 20110228
  9. TACROLIMUS [Suspect]
     Dosage: 3.5 MG, UNK
     Dates: start: 20110728
  10. PREDNISOLONE [Suspect]
     Dosage: 7.5 MG, QD
     Dates: start: 20110208
  11. PREDNISOLONE [Suspect]
     Dosage: 30 MG, QD
     Route: 048
     Dates: start: 20110214
  12. PREDNISOLONE [Suspect]
     Dosage: 7.5 MG, UNK
     Dates: start: 20110228
  13. PREDNISOLONE [Suspect]
     Dosage: 500 MG, DAILY
     Dates: start: 20110628
  14. PREDNISOLONE [Suspect]
     Dosage: 7.5 MG, UNK
     Dates: start: 20110728

REACTIONS (6)
  - Wound dehiscence [Recovered/Resolved]
  - Kidney transplant rejection [Recovered/Resolved]
  - Pyelonephritis [Recovered/Resolved]
  - Nephrosclerosis [Recovered/Resolved]
  - Renal tubular atrophy [Recovered/Resolved]
  - Kidney fibrosis [Recovered/Resolved]
